FAERS Safety Report 24273586 (Version 1)
Quarter: 2024Q3

REPORT INFORMATION
  Report Type: Spontaneous
  Country: US (occurrence: US)
  Receive Date: 20240902
  Receipt Date: 20240902
  Transmission Date: 20241017
  Serious: No
  Sender: ASTELLAS
  Company Number: US-ASTELLAS-2024US019946

PATIENT
  Sex: Male
  Weight: 94.4 kg

DRUGS (2)
  1. ENZALUTAMIDE [Suspect]
     Active Substance: ENZALUTAMIDE
     Indication: Hormone-refractory prostate cancer
     Dosage: 80 MG, ONCE DAILY
     Route: 065
  2. TALZENNA [Concomitant]
     Active Substance: TALAZOPARIB TOSYLATE
     Indication: Hormone-refractory prostate cancer
     Dosage: 0.25 MG, ONCE DAILY (NUMBER OF REFILLS: 11)
     Route: 048

REACTIONS (2)
  - Underdose [Unknown]
  - Off label use [Unknown]
